FAERS Safety Report 4957284-0 (Version None)
Quarter: 2006Q1

REPORT INFORMATION
  Report Type: 
  Country: None (occurrence: None)
  Receive Date: 20060323
  Receipt Date: 20060306
  Transmission Date: 20060701
  Serious: Yes (Other)
  Sender: FDA-Public Use
  Company Number: US200602003118

PATIENT
  Age: 63 Year
  Sex: Female

DRUGS (2)
  1. FORTEO [Suspect]
     Indication: OSTEOPOROSIS
     Dates: start: 20050101, end: 20060101
  2. FORTEO PEN (FORTEO PEN) [Concomitant]

REACTIONS (7)
  - AMNESIA [None]
  - CONVULSION [None]
  - FALL [None]
  - HALLUCINATION [None]
  - INJECTION SITE REACTION [None]
  - LIPOMA [None]
  - ROAD TRAFFIC ACCIDENT [None]
